FAERS Safety Report 7350732-0 (Version None)
Quarter: 2011Q1

REPORT INFORMATION
  Report Type: 
  Country: None (occurrence: None)
  Receive Date: 20110314
  Receipt Date: 20110310
  Transmission Date: 20110831
  Serious: Yes (Life-Threatening, Hospitalization)
  Sender: FDA-Public Use
  Company Number: ES-PFIZER INC-2011050042

PATIENT
  Age: 54 Year
  Sex: Male

DRUGS (6)
  1. EMCONCOR [Interacting]
     Dosage: 5 MG, 1X/DAY
     Route: 048
     Dates: end: 20100716
  2. MANIDIPINE HYDROCHLORIDE [Interacting]
     Indication: HYPERTENSION
     Dosage: 20 MG, 1X/DAY
     Route: 048
     Dates: end: 20100716
  3. CARDURA [Suspect]
     Indication: HYPERTENSION
     Dosage: 4 MG, 1X/DAY
     Route: 048
     Dates: end: 20100716
  4. APROVEL [Interacting]
     Indication: HYPERTENSION
     Dosage: 300 MG, 1X/DAY
     Route: 048
     Dates: end: 20100716
  5. METFORMIN [Concomitant]
     Indication: DIABETES MELLITUS
     Dosage: 850 MG, 1X/DAY
     Route: 048
     Dates: start: 20060301, end: 20100716
  6. HUMALOG [Concomitant]
     Indication: DIABETES MELLITUS
     Dosage: 47 IU, UNK
     Route: 058
     Dates: start: 20060401, end: 20100716

REACTIONS (2)
  - DRUG INTERACTION [None]
  - RENAL FAILURE ACUTE [None]
